FAERS Safety Report 4853938-5 (Version None)
Quarter: 2005Q4

REPORT INFORMATION
  Report Type: 
  Country: None (occurrence: None)
  Receive Date: 20051213
  Receipt Date: 20051206
  Transmission Date: 20060501
  Serious: Yes (Hospitalization)
  Sender: FDA-Public Use
  Company Number: 24049

PATIENT

DRUGS (2)
  1. NIASPAN [Suspect]
  2. PLAVIX [Suspect]

REACTIONS (1)
  - HAEMORRHAGE [None]
